FAERS Safety Report 8713098 (Version 2)
Quarter: 2012Q4

REPORT INFORMATION
  Report Type: 
  Country: US (occurrence: None)
  Receive Date: 20120724
  Receipt Date: 20120817
  Transmission Date: 20130627
  Serious: Yes (Hospitalization)
  Sender: FDA-Public Use
  Company Number: DSA_58547_2012

PATIENT
  Sex: Female

DRUGS (3)
  1. XENAZINE [Suspect]
     Indication: TARDIVE DYSKINESIA
     Dosage: 12.5 MG BID ORAL
     Route: 048
     Dates: start: 20110329
  2. XENAZINE [Suspect]
     Indication: CHOREA
     Dosage: 12.5 MG BID ORAL
     Route: 048
     Dates: start: 20110329
  3. XENAZINE [Suspect]
     Dosage: 12.5 MG BID ORAL
     Route: 048
     Dates: start: 20110329

REACTIONS (1)
  - Hospitalisation [None]
